FAERS Safety Report 4339543-8 (Version None)
Quarter: 2004Q2

REPORT INFORMATION
  Report Type: 
  Country: None (occurrence: None)
  Receive Date: 20040412
  Receipt Date: 20040331
  Transmission Date: 20050107
  Serious: Yes (Death)
  Sender: FDA-Public Use
  Company Number: NO-JNJFOC-20040400306

PATIENT
  Age: 89 Year
  Sex: Male

DRUGS (11)
  1. HALDOL [Suspect]
     Indication: APNOEA
     Dosage: INTRAVENOUS (NOT OTHERWISE SPECIFIED)
     Route: 042
     Dates: start: 20040313, end: 20040313
  2. HALDOL [Suspect]
     Indication: RESTLESSNESS
     Dosage: INTRAVENOUS (NOT OTHERWISE SPECIFIED)
     Route: 042
     Dates: start: 20040313, end: 20040313
  3. MORPHINE [Concomitant]
  4. ACETYLSALISYLACID (ACETYLSALICYLIC ACID) [Concomitant]
  5. ENOXAPARIN (HEPARIN-FRACTION, SODIUM SALT) [Concomitant]
  6. GLYCEROL TRINITRATE (GLYCERYL TRINITRATE) [Concomitant]
  7. FINASTERID (FINASTERIDE) [Concomitant]
  8. N ACETYLCYSTEIN   (ACETYLCYSTEINE) [Concomitant]
  9. DIGITOKSIN (DIGITOXIN) [Concomitant]
  10. FUROSEMIDE [Concomitant]
  11. LISINOPRIL [Concomitant]

REACTIONS (6)
  - ARRHYTHMIA [None]
  - C-REACTIVE PROTEIN INCREASED [None]
  - CARDIAC ARREST [None]
  - HAEMOGLOBIN DECREASED [None]
  - RESPIRATORY ARREST [None]
  - VENTRICULAR TACHYCARDIA [None]
